FAERS Safety Report 5326503-3 (Version None)
Quarter: 2007Q2

REPORT INFORMATION
  Report Type: 
  Country: None (occurrence: None)
  Receive Date: 20070516
  Receipt Date: 20070516
  Transmission Date: 20071010
  Serious: Yes (Death, Life-Threatening)
  Sender: FDA-Public Use
  Company Number: DE-JNJFOC-20070301065

PATIENT
  Sex: Female
  Weight: 85 kg

DRUGS (3)
  1. RISPERDAL [Suspect]
     Indication: CONFUSIONAL STATE
     Route: 048
  2. AMANTADINE HCL [Concomitant]
     Indication: PARKINSON'S DISEASE
  3. LEVODOPA [Concomitant]
     Indication: PARKINSON'S DISEASE

REACTIONS (14)
  - ALANINE AMINOTRANSFERASE INCREASED [None]
  - ASPARTATE AMINOTRANSFERASE INCREASED [None]
  - BASE EXCESS [None]
  - BLOOD SODIUM INCREASED [None]
  - COMA [None]
  - CONFUSIONAL STATE [None]
  - DELIRIUM [None]
  - DISORIENTATION [None]
  - GAMMA-GLUTAMYLTRANSFERASE INCREASED [None]
  - HYPERKINESIA [None]
  - NEUROLEPTIC MALIGNANT SYNDROME [None]
  - RENAL FAILURE ACUTE [None]
  - SEPTIC SHOCK [None]
  - SOMNOLENCE [None]
